FAERS Safety Report 14724321 (Version 1)
Quarter: 2018Q2

REPORT INFORMATION
  Report Type: Report from Study
  Country: GB (occurrence: GB)
  Receive Date: 20180405
  Receipt Date: 20180405
  Transmission Date: 20180711
  Serious: No
  Sender: FDA-Public Use
  Company Number: GB-BIOVERATIV-2018BV000187

PATIENT
  Sex: Male

DRUGS (1)
  1. ELOCTA [Suspect]
     Active Substance: EFMOROCTOCOG ALFA
     Indication: FACTOR VIII DEFICIENCY
     Dosage: TOOK DOUBLE THE PRESCRIBED AMOUNT FOR 6 MONTHS
     Route: 065

REACTIONS (1)
  - Drug ineffective [Unknown]
